FAERS Safety Report 6645322-9 (Version None)
Quarter: 2010Q1

REPORT INFORMATION
  Report Type: 
  Country: None (occurrence: None)
  Receive Date: 20100322
  Receipt Date: 20100311
  Transmission Date: 20100710
  Serious: Yes (Hospitalization)
  Sender: FDA-Public Use
  Company Number: JP-AMGEN-US390700

PATIENT
  Sex: Female
  Weight: 54 kg

DRUGS (11)
  1. ENBREL [Suspect]
     Indication: RHEUMATOID ARTHRITIS
     Dosage: 25 MG; TWICE WEEKLY LYOPHILIZED
     Route: 058
     Dates: start: 20080509
  2. PREDNISOLONE [Suspect]
     Indication: RHEUMATOID ARTHRITIS
     Route: 048
  3. RHEUMATREX [Suspect]
     Indication: RHEUMATOID ARTHRITIS
     Route: 048
     Dates: start: 20070301
  4. FOLIC ACID [Concomitant]
     Route: 048
  5. FAMOTIDINE [Concomitant]
     Indication: PROPHYLAXIS AGAINST GASTROINTESTINAL ULCER
     Route: 048
  6. LORAZEPAM [Concomitant]
     Indication: INSOMNIA
     Route: 048
  7. ACTONEL [Concomitant]
     Indication: OSTEOPOROSIS
     Route: 048
  8. METHYCOBAL [Concomitant]
     Route: 048
  9. DASEN [Concomitant]
     Indication: BRONCHITIS CHRONIC
     Route: 048
  10. MUCODYNE [Concomitant]
     Indication: BRONCHITIS CHRONIC
     Route: 048
  11. LOXONIN [Concomitant]
     Route: 048

REACTIONS (2)
  - HERPES ZOSTER [None]
  - KNEE ARTHROPLASTY [None]
